FAERS Safety Report 7946372-2 (Version None)
Quarter: 2011Q4

REPORT INFORMATION
  Report Type: 
  Country: None (occurrence: None)
  Receive Date: 20111129
  Receipt Date: 20111123
  Transmission Date: 20120403
  Serious: Yes (Life-Threatening)
  Sender: FDA-Public Use
  Company Number: DE-MERCK-1111DEU00120

PATIENT
  Age: 54 Year
  Sex: Male
  Weight: 157 kg

DRUGS (1)
  1. CANCIDAS [Suspect]
     Indication: PNEUMONIA FUNGAL
     Route: 042
     Dates: start: 20110227, end: 20110403

REACTIONS (3)
  - RHABDOMYOLYSIS [None]
  - BLOOD CREATINE PHOSPHOKINASE INCREASED [None]
  - OVERDOSE [None]
